FAERS Safety Report 5635032-9 (Version None)
Quarter: 2008Q1

REPORT INFORMATION
  Report Type: 
  Country: None (occurrence: None)
  Receive Date: 20080222
  Receipt Date: 20080212
  Transmission Date: 20080703
  Serious: Yes (Other)
  Sender: FDA-Public Use
  Company Number: US-ABBOTT-07P-163-0430735-00

PATIENT
  Sex: Male
  Weight: 79.904 kg

DRUGS (4)
  1. HUMIRA [Suspect]
     Indication: RHEUMATOID ARTHRITIS
     Route: 058
     Dates: start: 20040430, end: 20071101
  2. HYDROXYCHLOROQUINE PHOSPHATE [Concomitant]
     Indication: DRUG USE FOR UNKNOWN INDICATION
     Dates: end: 20041111
  3. HYDROXYCHLOROQUINE PHOSPHATE [Concomitant]
     Dates: start: 20041111
  4. PANTOPRAZOLE [Concomitant]
     Indication: DRUG USE FOR UNKNOWN INDICATION

REACTIONS (3)
  - ABDOMINAL MASS [None]
  - B-CELL SMALL LYMPHOCYTIC LYMPHOMA [None]
  - CHRONIC LYMPHOCYTIC LEUKAEMIA [None]
